FAERS Safety Report 6148365-7 (Version None)
Quarter: 2009Q2

REPORT INFORMATION
  Report Type: 
  Country: None (occurrence: None)
  Receive Date: 20090408
  Receipt Date: 20090331
  Transmission Date: 20091009
  Serious: Yes (Hospitalization, Other)
  Sender: FDA-Public Use
  Company Number: GB-JNJFOC-20070905020

PATIENT
  Age: 22 Year
  Sex: Female

DRUGS (6)
  1. INFLIXIMAB [Suspect]
     Dosage: AT 2 WEEKS
     Route: 042
  2. INFLIXIMAB [Suspect]
     Indication: PUSTULAR PSORIASIS
     Dosage: 0, 2 AND 6 WEEKS
     Route: 042
  3. METHOTREXATE [Concomitant]
     Indication: PUSTULAR PSORIASIS
  4. PUVA [Concomitant]
     Indication: PUSTULAR PSORIASIS
  5. CYCLOSPORINE [Concomitant]
  6. CYCLOSPORINE [Concomitant]
     Indication: PUSTULAR PSORIASIS

REACTIONS (2)
  - AUTOIMMUNE HEPATITIS [None]
  - ECZEMA [None]
